FAERS Safety Report 11912503 (Version 3)
Quarter: 2016Q1

REPORT INFORMATION
  Report Type: Spontaneous
  Country: CA (occurrence: CA)
  Receive Date: 20160113
  Receipt Date: 20160129
  Transmission Date: 20160526
  Serious: Yes (Hospitalization, Other)
  Sender: FDA-Public Use
  Company Number: CA-AMGEN-CANSP2016002661

PATIENT
  Age: 56 Year
  Sex: Female

DRUGS (7)
  1. ENBREL [Suspect]
     Active Substance: ETANERCEPT
     Indication: RHEUMATOID ARTHRITIS
     Dosage: UNK
     Route: 065
  2. GRAVOL [Concomitant]
     Active Substance: DIMENHYDRINATE
     Dosage: UNK UNK, QD
  3. METHOTREXATE [Concomitant]
     Active Substance: METHOTREXATE
     Dosage: UNK
  4. GOLD [Concomitant]
     Active Substance: GOLD
     Dosage: UNK
  5. HYDROMORPHONE [Concomitant]
     Active Substance: HYDROMORPHONE
     Dosage: UNK UNK, QD
  6. PERCOCET                           /00446701/ [Concomitant]
     Active Substance: ACETAMINOPHEN\OXYCODONE HYDROCHLORIDE\OXYCODONE TEREPHTHALATE
     Dosage: UNK UNK, QD
  7. PREDNISONE. [Concomitant]
     Active Substance: PREDNISONE
     Indication: RHEUMATOID ARTHRITIS
     Dosage: UNK UNK, QD

REACTIONS (25)
  - Multiple fractures [Unknown]
  - Blood pressure increased [Unknown]
  - Hypoacusis [Unknown]
  - Musculoskeletal stiffness [Recovered/Resolved]
  - Malaise [Unknown]
  - Diabetes mellitus [Unknown]
  - Hip arthroplasty [Unknown]
  - Localised infection [Unknown]
  - Skin disorder [Unknown]
  - Fall [Unknown]
  - Limb injury [Unknown]
  - Condition aggravated [Unknown]
  - Diarrhoea [Unknown]
  - Abdominal pain upper [Unknown]
  - Ear pain [Recovered/Resolved]
  - Knee arthroplasty [Unknown]
  - Drug ineffective [Unknown]
  - Bone pain [Unknown]
  - Abdominal discomfort [Unknown]
  - Arthritis [Unknown]
  - Contusion [Unknown]
  - Toothache [Recovered/Resolved]
  - Hospitalisation [Recovered/Resolved]
  - Cellulitis [Unknown]
  - Vomiting [Unknown]

NARRATIVE: CASE EVENT DATE: 2014
